FAERS Safety Report 13807974 (Version 3)
Quarter: 2017Q3

REPORT INFORMATION
  Report Type: Spontaneous
  Country: FR (occurrence: FR)
  Receive Date: 20170728
  Receipt Date: 20170927
  Transmission Date: 20171127
  Serious: Yes (Death)
  Sender: FDA-Public Use
  Company Number: FR-PFIZER INC-2017320951

PATIENT
  Age: 86 Year
  Sex: Female
  Weight: 83 kg

DRUGS (12)
  1. ALPRAZOLAM. [Suspect]
     Active Substance: ALPRAZOLAM
     Indication: ANXIETY
     Dosage: 0.5 DF, 1X/DAY; IF NEEDED
     Dates: start: 201705
  2. CALCIPARINE [Suspect]
     Active Substance: HEPARIN CALCIUM
     Dosage: 10000 IU, 2X/DAY
     Dates: start: 201705
  3. DALACINE [Suspect]
     Active Substance: CLINDAMYCIN HYDROCHLORIDE
     Indication: DIABETIC FOOT
     Dosage: 2.4 G, DAILY
     Dates: start: 201705
  4. MINISINTROM [Concomitant]
     Active Substance: ACENOCOUMAROL
     Dosage: UNK
     Dates: end: 20170528
  5. RAMIPRIL. [Concomitant]
     Active Substance: RAMIPRIL
     Dosage: UNK
  6. CLAFORAN [Suspect]
     Active Substance: CEFOTAXIME SODIUM
     Indication: DIABETIC FOOT
     Dosage: 1 G, 3X/DAY
     Dates: start: 201705, end: 20170603
  7. LANTUS [Concomitant]
     Active Substance: INSULIN GLARGINE
     Dosage: UNK
  8. ATENOLOL. [Concomitant]
     Active Substance: ATENOLOL
     Dosage: UNK
  9. PARACETAMOL [Suspect]
     Active Substance: ACETAMINOPHEN
     Dosage: 1 G, EVERY 12 HOURS IF NEEDED
     Dates: start: 201705
  10. FUROSEMIDE. [Concomitant]
     Active Substance: FUROSEMIDE
     Dosage: UNK
  11. TRANQUITAL [Concomitant]
     Active Substance: HERBALS
     Dosage: UNK
  12. CEFAZOLIN SODIUM. [Suspect]
     Active Substance: CEFAZOLIN SODIUM
     Dosage: 6 G, DAILY (HIGH DOSAGE REGIMEN)
     Dates: start: 20170603

REACTIONS (3)
  - Malnutrition [Unknown]
  - Prothrombin time ratio decreased [Fatal]
  - Shock haemorrhagic [Fatal]

NARRATIVE: CASE EVENT DATE: 201705
